FAERS Safety Report 9770758 (Version 4)
Quarter: 2022Q4

REPORT INFORMATION
  Report Type: Report from Study
  Country: TW (occurrence: TW)
  Receive Date: 20131218
  Receipt Date: 20221027
  Transmission Date: 20230113
  Serious: Yes (Hospitalization, Other)
  Sender: FDA-Public Use
  Company Number: TW-SHIRE-ALL1-2013-08838

PATIENT
  Age: 5 Year
  Sex: Male

DRUGS (11)
  1. IDURSULFASE [Suspect]
     Active Substance: IDURSULFASE
     Indication: Mucopolysaccharidosis II
     Dosage: UNK
     Route: 041
  2. MEQUITAZINE [Concomitant]
     Active Substance: MEQUITAZINE
     Indication: Premedication
     Dosage: 25 MILLIGRAM, BID
     Route: 048
     Dates: start: 20110909
  3. DEXCHLORPHENIRAMINE MALEATE [Concomitant]
     Active Substance: DEXCHLORPHENIRAMINE MALEATE
     Indication: Premedication
     Dosage: 1 MILLIGRAM, QD
     Route: 048
     Dates: start: 20110909, end: 20110920
  4. DEXCHLORPHENIRAMINE MALEATE [Concomitant]
     Active Substance: DEXCHLORPHENIRAMINE MALEATE
     Dosage: UNK
     Route: 048
     Dates: start: 20110921, end: 20111001
  5. GUAIACOL GLYCERIL [Concomitant]
     Indication: Pain
     Dosage: 6 MILLILITER, QID
     Route: 048
     Dates: start: 20110909, end: 20111001
  6. DOMPERIDONE [Concomitant]
     Active Substance: DOMPERIDONE
     Indication: Gastrointestinal disorder
     Dosage: UNK
     Route: 048
     Dates: start: 20110926
  7. HYDROXYZINE [Concomitant]
     Active Substance: HYDROXYZINE HYDROCHLORIDE
     Indication: Premedication
     Dosage: UNK
     Route: 048
     Dates: start: 20110926, end: 20111003
  8. DEXTROMETHORPHAN [Concomitant]
     Active Substance: DEXTROMETHORPHAN
     Indication: Pain
     Dosage: 10 MG, 4X/DAY:QID
     Route: 048
     Dates: start: 20110921, end: 20111001
  9. DICLOFENAC [Concomitant]
     Active Substance: DICLOFENAC
     Indication: Pain
     Dosage: 12.5 MILLIGRAM
     Route: 048
     Dates: start: 20110921
  10. OFLOXACIN [Concomitant]
     Active Substance: OFLOXACIN
     Indication: Anti-infective therapy
     Dosage: 5 MILLILITER, BID
     Route: 001
     Dates: start: 20110921
  11. AMOXICILLIN [Concomitant]
     Active Substance: AMOXICILLIN
     Indication: Anti-infective therapy
     Dosage: 250 MG, 4X/DAY:QID
     Route: 048
     Dates: start: 20110921

REACTIONS (10)
  - Hyperplasia [Recovered/Resolved]
  - Hernia [Recovered/Resolved]
  - Laryngomalacia [Recovered/Resolved]
  - Ear disorder [Recovered/Resolved]
  - Inguinal hernia [Recovered/Resolved]
  - Otitis media [Recovered/Resolved]
  - Middle ear effusion [Recovered/Resolved]
  - Laryngeal disorder [Recovered/Resolved]
  - Adenoidal disorder [Recovered/Resolved]
  - Tonsillar disorder [Recovered/Resolved]

NARRATIVE: CASE EVENT DATE: 20110915
